FAERS Safety Report 7674678-3 (Version None)
Quarter: 2011Q3

REPORT INFORMATION
  Report Type: 
  Country: None (occurrence: None)
  Receive Date: 20110810
  Receipt Date: 20110801
  Transmission Date: 20111222
  Serious: Yes (Hospitalization, Disabling, Other)
  Sender: FDA-Public Use
  Company Number: US-GLAXOSMITHKLINE-A0858537A

PATIENT
  Age: 56 Year
  Sex: Male
  Weight: 89.1 kg

DRUGS (3)
  1. LAMICTAL [Suspect]
     Indication: PROPHYLAXIS
     Dosage: 50MG PER DAY
     Route: 048
     Dates: start: 20100315, end: 20100405
  2. IBUPROFEN [Concomitant]
  3. PRILOSEC [Concomitant]

REACTIONS (13)
  - PAIN [None]
  - CONVULSION [None]
  - AGGRESSION [None]
  - MOVEMENT DISORDER [None]
  - GASTROOESOPHAGEAL REFLUX DISEASE [None]
  - DIZZINESS [None]
  - VERTIGO [None]
  - CRYING [None]
  - ADVERSE DRUG REACTION [None]
  - TOURETTE'S DISORDER [None]
  - TREMOR [None]
  - DYSKINESIA [None]
  - GAIT DISTURBANCE [None]
